FAERS Safety Report 22172350 (Version 9)
Quarter: 2024Q2

REPORT INFORMATION
  Report Type: Spontaneous
  Country: CA (occurrence: CA)
  Receive Date: 20230404
  Receipt Date: 20240520
  Transmission Date: 20240715
  Serious: Yes (Other)
  Sender: FDA-Public Use
  Company Number: CA-PFIZER INC-202300016356

PATIENT
  Age: 67 Year
  Sex: Male

DRUGS (5)
  1. CIBINQO [Suspect]
     Active Substance: ABROCITINIB
     Indication: Dermatitis atopic
     Dosage: 200 MG, 1X/DAY
     Route: 048
  2. CIBINQO [Suspect]
     Active Substance: ABROCITINIB
     Dosage: 200 MG, 1X/DAY
     Route: 048
     Dates: start: 20230321, end: 2023
  3. CIBINQO [Suspect]
     Active Substance: ABROCITINIB
     Dosage: 100 MG, 2X/DAY (ADVISED TO INSTEAD OF TAKING 200 MG , TAKE 100MG IN THE MORNING AND 100MG AT NIGHT)
     Route: 048
     Dates: start: 2023, end: 2023
  4. CIBINQO [Suspect]
     Active Substance: ABROCITINIB
     Dosage: 100 MG, 1X/DAY
     Route: 048
     Dates: start: 2023, end: 2023
  5. CIBINQO [Suspect]
     Active Substance: ABROCITINIB
     Dosage: 100 MG, EVERY 2 DAY
     Route: 048
     Dates: start: 2023

REACTIONS (17)
  - Cataract [Unknown]
  - Off label use [Unknown]
  - Nausea [Recovered/Resolved]
  - Vomiting [Recovered/Resolved]
  - Poor quality sleep [Unknown]
  - Discomfort [Unknown]
  - Fatigue [Unknown]
  - Asthenia [Unknown]
  - Flatulence [Not Recovered/Not Resolved]
  - Eructation [Not Recovered/Not Resolved]
  - Pollakiuria [Not Recovered/Not Resolved]
  - Abdominal discomfort [Unknown]
  - Vision blurred [Recovered/Resolved]
  - Lacrimation increased [Not Recovered/Not Resolved]
  - Abdominal distension [Not Recovered/Not Resolved]
  - Diarrhoea [Not Recovered/Not Resolved]
  - Gastrointestinal disorder [Not Recovered/Not Resolved]

NARRATIVE: CASE EVENT DATE: 20230101
